FAERS Safety Report 11452536 (Version 1)
Quarter: 2015Q3

REPORT INFORMATION
  Report Type: Report from Study
  Country: US (occurrence: US)
  Receive Date: 20150903
  Receipt Date: 20150903
  Transmission Date: 20151125
  Serious: Yes (Other)
  Sender: FDA-Public Use
  Company Number: US-BAXALTA-2015BLT001421

PATIENT
  Sex: Female

DRUGS (1)
  1. IMMUNOGLOBULIN, NORMAL HUMAN [Suspect]
     Active Substance: HUMAN IMMUNOGLOBULIN G
     Indication: PRODUCT USED FOR UNKNOWN INDICATION
     Dosage: 45 G, 1X A MONTH
     Route: 042

REACTIONS (3)
  - Fatigue [Unknown]
  - Migraine [Unknown]
  - Viral infection [Unknown]
